FAERS Safety Report 9414007 (Version 2)
Quarter: 2013Q3

REPORT INFORMATION
  Report Type: Spontaneous
  Country: US (occurrence: US)
  Receive Date: 20130723
  Receipt Date: 20130828
  Transmission Date: 20140515
  Serious: Yes (Other)
  Sender: FDA-Public Use
  Company Number: US-BAUSCH-BL-2013-004218

PATIENT
  Age: 69 Year
  Sex: Male

DRUGS (3)
  1. LATANOPROST OPHTHALMIC SOLUTION 0.005% [Suspect]
     Indication: GLAUCOMA
     Dosage: ONE DROP INTO RIGHT EYE AT BEDTIME
     Route: 047
     Dates: start: 20130301, end: 20130307
  2. LATANOPROST OPHTHALMIC SOLUTION 0.005% [Suspect]
     Dosage: ONE DROP INTO LEFT EYE AT BEDTIME
     Route: 047
     Dates: start: 20130301, end: 20130307
  3. REFRESH [Concomitant]

REACTIONS (3)
  - Intraocular pressure increased [Recovered/Resolved]
  - Drug ineffective [Recovered/Resolved]
  - Vitreous floaters [Not Recovered/Not Resolved]
